FAERS Safety Report 4467395-4 (Version None)
Quarter: 2004Q3

REPORT INFORMATION
  Report Type: 
  Country: None (occurrence: None)
  Receive Date: 20040917
  Receipt Date: 20040817
  Transmission Date: 20050211
  Serious: No
  Sender: FDA-Public Use
  Company Number: US-JNJFOC-20040806590

PATIENT
  Age: 25 Year
  Sex: Female
  Weight: 47.6277 kg

DRUGS (4)
  1. ORTHO EVRA [Suspect]
     Indication: CONTRACEPTION
     Dosage: 1 DOSE(S) 3 IN 4 WEEK, TRANSDERMAL
     Route: 062
     Dates: start: 20040601
  2. THERAPY UNSPECIFIED (ALL OTHER THERAPEUTIC PRODUCTS) [Concomitant]
  3. STEROID CREAM (CORTICOSTEROID NOS) [Concomitant]
  4. BENADRYL [Concomitant]

REACTIONS (1)
  - PRURITUS [None]
